FAERS Safety Report 23310170 (Version 1)
Quarter: 2023Q4

REPORT INFORMATION
  Report Type: Spontaneous
  Country: FR (occurrence: FR)
  Receive Date: 20231218
  Receipt Date: 20231218
  Transmission Date: 20240110
  Serious: Yes (Hospitalization)
  Sender: FDA-Public Use
  Company Number: None

PATIENT
  Age: 59 Year

DRUGS (12)
  1. ONDANSETRON [Suspect]
     Active Substance: ONDANSETRON
     Indication: Prophylaxis of nausea and vomiting
     Route: 065
     Dates: start: 20231016, end: 20231021
  2. OMEPRAZOLE [Concomitant]
     Active Substance: OMEPRAZOLE
  3. OXALIPLATIN [Suspect]
     Active Substance: OXALIPLATIN
     Indication: Rectal adenocarcinoma
     Dosage: TIME INTERVAL: TOTAL: 5 MG/ML, DILUTED SOLUTION FOR PERFUSION
     Route: 042
     Dates: start: 20231018
  4. ACETAMINOPHEN [Concomitant]
     Active Substance: ACETAMINOPHEN
  5. TAHOR [Concomitant]
     Active Substance: ATORVASTATIN CALCIUM
  6. HEPARIN [Concomitant]
     Active Substance: HEPARIN SODIUM
  7. LEUCOVORIN CALCIUM [Concomitant]
     Active Substance: LEUCOVORIN CALCIUM
  8. FLUOROURACIL [Suspect]
     Active Substance: FLUOROURACIL
     Indication: Rectal adenocarcinoma
     Dosage: TIME INTERVAL: TOTAL: 50 MG/ML ,DILUTED SOLUTION FOR PERFUSION
     Route: 042
     Dates: start: 20231018
  9. AMLODIPINE BESYLATE [Concomitant]
     Active Substance: AMLODIPINE BESYLATE
  10. SPASFON [Concomitant]
  11. APREPITANT [Suspect]
     Active Substance: APREPITANT
     Indication: Prophylaxis of nausea and vomiting
     Route: 048
     Dates: start: 20231019, end: 20231020
  12. MORPHINE [Concomitant]
     Active Substance: MORPHINE

REACTIONS (1)
  - Confusional state [Recovered/Resolved]

NARRATIVE: CASE EVENT DATE: 20231020
